FAERS Safety Report 9123209 (Version 1)
Quarter: 2013Q1

REPORT INFORMATION
  Report Type: Spontaneous
  Country: US (occurrence: None)
  Receive Date: 20130131
  Receipt Date: 20130131
  Transmission Date: 20140127
  Serious: Yes (Death)
  Sender: FDA-Public Use
  Company Number: DKLU1088323

PATIENT
  Age: 34 Year
  Sex: Male

DRUGS (2)
  1. DESOXYN (METHAMPHETAMINE HCL) [Suspect]
     Indication: PRODUCT USED FOR UNKNOWN INDICATION
  2. ANTIFREEZE [Suspect]

REACTIONS (1)
  - Completed suicide [None]
